FAERS Safety Report 11318939 (Version 1)
Quarter: 2015Q3

REPORT INFORMATION
  Report Type: Spontaneous
  Country: US (occurrence: None)
  Receive Date: 20150727
  Receipt Date: 20150727
  Transmission Date: 20151125
  Serious: Yes (Death)
  Sender: FDA-Public Use
  Company Number: UCM201507-000498

PATIENT
  Age: 14 Year
  Sex: Male

DRUGS (3)
  1. BUPROPION (BUPROPION) (BUPROPION) [Suspect]
     Active Substance: BUPROPION
     Indication: SUICIDE ATTEMPT
  2. CLONIDINE HCL (CLONIDINE HCL) (CLONDINE HCL) [Suspect]
     Active Substance: CLONIDINE HYDROCHLORIDE
     Indication: SUICIDE ATTEMPT
  3. METHYLPHENIDATE (METHYLPHENIDATE) (METHYLPHENIDATE) [Suspect]
     Active Substance: METHYLPHENIDATE
     Indication: SUICIDE ATTEMPT

REACTIONS (4)
  - Cardiac arrest [None]
  - Completed suicide [None]
  - Intentional overdose [None]
  - Seizure [None]
